FAERS Safety Report 24682662 (Version 2)
Quarter: 2025Q3

REPORT INFORMATION
  Report Type: Spontaneous
  Country: CN (occurrence: CN)
  Receive Date: 20241130
  Receipt Date: 20250803
  Transmission Date: 20251021
  Serious: Yes (Other)
  Sender: ALEXION PHARMACEUTICALS
  Company Number: CN-ASTRAZENECA-202411CHN011312CN

PATIENT
  Age: 50 Year
  Sex: Male

DRUGS (5)
  1. DAPAGLIFLOZIN [Suspect]
     Active Substance: DAPAGLIFLOZIN
     Indication: Hypertension
     Dosage: 10 MILLIGRAM, QD
     Dates: start: 20241024, end: 20241025
  2. TORSEMIDE [Suspect]
     Active Substance: TORSEMIDE
     Indication: Cardiac failure
     Dosage: 10 MILLIGRAM, QD
     Dates: start: 20241022, end: 20241025
  3. TORSEMIDE [Suspect]
     Active Substance: TORSEMIDE
     Indication: Hypertension
  4. VERICIGUAT [Suspect]
     Active Substance: VERICIGUAT
     Indication: Cardiac failure
     Dosage: 2.5 MILLIGRAM, QD
     Dates: start: 20241024, end: 20241025
  5. VERICIGUAT [Suspect]
     Active Substance: VERICIGUAT
     Indication: Hypertension

REACTIONS (2)
  - Renal impairment [Recovering/Resolving]
  - Acute kidney injury [Unknown]
